FAERS Safety Report 13065829 (Version 2)
Quarter: 2017Q1

REPORT INFORMATION
  Report Type: Spontaneous
  Country: CN (occurrence: CN)
  Receive Date: 20161227
  Receipt Date: 20170123
  Transmission Date: 20170428
  Serious: Yes (Hospitalization)
  Sender: FDA-Public Use
  Company Number: CN-GLAXOSMITHKLINE-CN2016GSK177987

PATIENT
  Sex: Male

DRUGS (1)
  1. BACTROBAN [Suspect]
     Active Substance: MUPIROCIN\MUPIROCIN CALCIUM
     Indication: SKIN DISORDER
     Dosage: UNK
     Route: 061

REACTIONS (3)
  - Haematuria [Recovered/Resolved]
  - Occult blood [Unknown]
  - Blood urine [Recovering/Resolving]

NARRATIVE: CASE EVENT DATE: 20161130
